FAERS Safety Report 4341859-6 (Version None)
Quarter: 2004Q2

REPORT INFORMATION
  Report Type: 
  Country: None (occurrence: None)
  Receive Date: 20040415
  Receipt Date: 20040401
  Transmission Date: 20050107
  Serious: Yes (Other)
  Sender: FDA-Public Use
  Company Number: USA040363631

PATIENT
  Age: 44 Year
  Sex: Female
  Weight: 60 kg

DRUGS (6)
  1. XIGRIS [Suspect]
     Indication: INTESTINAL PERFORATION
     Dosage: 24 UG/KG/HR
     Dates: start: 20040331
  2. XIGRIS [Suspect]
     Indication: SEPSIS
     Dosage: 24 UG/KG/HR
     Dates: start: 20040331
  3. VANCOMYCIN [Concomitant]
  4. VASOPRESSIN [Concomitant]
  5. FLAGYL [Concomitant]
  6. DOPAMINE HCL [Concomitant]

REACTIONS (3)
  - DISEASE RECURRENCE [None]
  - INTESTINAL PERFORATION [None]
  - SEPSIS [None]
